FAERS Safety Report 21717879 (Version 1)
Quarter: 2022Q4

REPORT INFORMATION
  Report Type: Report from Study
  Country: ZA (occurrence: ZA)
  Receive Date: 20221212
  Receipt Date: 20221212
  Transmission Date: 20230112
  Serious: Yes (Other)
  Sender: FDA-Public Use
  Company Number: ZA-GILEAD-2022-0608552

PATIENT
  Age: 35 Year
  Sex: Female

DRUGS (8)
  1. BICTEGRAVIR\EMTRICITABINE\TENOFOVIR ALAFENAMIDE [Suspect]
     Active Substance: BICTEGRAVIR\EMTRICITABINE\TENOFOVIR ALAFENAMIDE
     Indication: HIV infection
     Dosage: UNK
     Route: 048
     Dates: start: 20221116, end: 20221129
  2. RIFAMPIN [Suspect]
     Active Substance: RIFAMPIN
     Indication: Tuberculosis
     Dosage: UNK
     Route: 065
     Dates: start: 20221031, end: 20221129
  3. ISONIAZID [Suspect]
     Active Substance: ISONIAZID
     Indication: Tuberculosis
     Dosage: UNK
     Route: 065
     Dates: start: 20221031, end: 20221129
  4. ETHAMBUTOL [Suspect]
     Active Substance: ETHAMBUTOL HYDROCHLORIDE
     Indication: Tuberculosis
     Dosage: UNK
     Route: 065
     Dates: start: 20221031, end: 20221129
  5. PYRAZINAMIDE [Suspect]
     Active Substance: PYRAZINAMIDE
     Indication: Tuberculosis
     Dosage: UNK
     Route: 065
     Dates: start: 20221031, end: 20221129
  6. BACTRIM [Suspect]
     Active Substance: SULFAMETHOXAZOLE\TRIMETHOPRIM
     Indication: HIV infection
     Dosage: 2 DOSAGE FORM, QD
     Route: 065
     Dates: start: 20221102, end: 20221125
  7. PYRIDOXINE [Suspect]
     Active Substance: PYRIDOXINE
     Indication: Pulmonary tuberculosis
     Dosage: 25 MG, QD
     Route: 065
     Dates: start: 20221031, end: 20221129
  8. NUR-ISTERATE [Concomitant]

REACTIONS (2)
  - Hepatotoxicity [Not Recovered/Not Resolved]
  - Urticaria [Recovering/Resolving]

NARRATIVE: CASE EVENT DATE: 20221125
